FAERS Safety Report 20573423 (Version 1)
Quarter: 2022Q1

REPORT INFORMATION
  Report Type: Spontaneous
  Country: US (occurrence: US)
  Receive Date: 20220309
  Receipt Date: 20220309
  Transmission Date: 20220423
  Serious: No
  Sender: FDA-Public Use
  Company Number: US-PFIZER INC-2021822838

PATIENT
  Age: 36 Year
  Sex: Female
  Weight: 67.12 kg

DRUGS (1)
  1. BOSULIF [Suspect]
     Active Substance: BOSUTINIB MONOHYDRATE
     Dosage: 400 MG, DAILY
     Route: 048

REACTIONS (3)
  - Nausea [Unknown]
  - Dyspepsia [Unknown]
  - Vomiting [Unknown]
